FAERS Safety Report 4894771-8 (Version None)
Quarter: 2006Q1

REPORT INFORMATION
  Report Type: 
  Country: None (occurrence: None)
  Receive Date: 20060130
  Receipt Date: 20051107
  Transmission Date: 20060701
  Serious: Yes (Other)
  Sender: FDA-Public Use
  Company Number: JP-NOVOPROD-248350

PATIENT
  Age: 82 Year
  Sex: Female

DRUGS (2)
  1. GLUCAGON G NOVO [Suspect]
     Indication: ENDOSCOPY UPPER GASTROINTESTINAL TRACT
     Dosage: UNK, SINGLE
     Dates: start: 20051102, end: 20051102
  2. GLUCAGON G NOVO [Suspect]
     Dosage: UNK, UNK

REACTIONS (5)
  - FALL [None]
  - HEAD INJURY [None]
  - HYPOGLYCAEMIA [None]
  - HYPOGLYCAEMIC COMA [None]
  - LOSS OF CONSCIOUSNESS [None]
